FAERS Safety Report 8604351-6 (Version None)
Quarter: 2012Q3

REPORT INFORMATION
  Report Type: 
  Country: None (occurrence: None)
  Receive Date: 20120820
  Receipt Date: 20120808
  Transmission Date: 20120928
  Serious: Yes (Hospitalization)
  Sender: FDA-Public Use
  Company Number: SE-JNJFOC-20120803955

PATIENT
  Sex: Male

DRUGS (1)
  1. CONCERTA [Suspect]
     Indication: ATTENTION DEFICIT/HYPERACTIVITY DISORDER
     Route: 048

REACTIONS (7)
  - HEAD INJURY [None]
  - FEELING ABNORMAL [None]
  - MUSCLE SPASMS [None]
  - DIZZINESS [None]
  - HYPOAESTHESIA [None]
  - DYSARTHRIA [None]
  - HEADACHE [None]
